FAERS Safety Report 4894721-4 (Version None)
Quarter: 2006Q1

REPORT INFORMATION
  Report Type: 
  Country: None (occurrence: None)
  Receive Date: 20060127
  Receipt Date: 20060127
  Transmission Date: 20060701
  Serious: Yes (Disabling)
  Sender: FDA-Public Use
  Company Number: None

PATIENT
  Age: 75 Year
  Sex: Male
  Weight: 83.2351 kg

DRUGS (6)
  1. DILTIAZEM [Suspect]
     Indication: HYPERTENSION
     Dosage: 240 MG QAM PO
     Route: 048
     Dates: start: 19951229, end: 20060131
  2. ZOCOR [Suspect]
     Indication: HYPERLIPIDAEMIA
     Dosage: 20 MG QHS PO
     Route: 048
     Dates: start: 20050613, end: 20050830
  3. LISINOPRIL [Concomitant]
  4. AMITRIPTYLINE HCL [Concomitant]
  5. ACETAMINOPHEN [Concomitant]
  6. ASPIRIN [Concomitant]

REACTIONS (15)
  - ASTHENIA [None]
  - BLOOD CHLORIDE INCREASED [None]
  - BLOOD CHOLESTEROL INCREASED [None]
  - BLOOD CREATINE PHOSPHOKINASE INCREASED [None]
  - BLOOD POTASSIUM DECREASED [None]
  - BLOOD SODIUM INCREASED [None]
  - BLOOD UREA NITROGEN/CREATININE RATIO INCREASED [None]
  - CARBON DIOXIDE DECREASED [None]
  - LIMB INJURY [None]
  - LOW DENSITY LIPOPROTEIN INCREASED [None]
  - MALAISE [None]
  - MYALGIA [None]
  - MYOGLOBIN URINE PRESENT [None]
  - PROTHROMBIN TIME PROLONGED [None]
  - SHOULDER PAIN [None]
